FAERS Safety Report 4560064-1 (Version None)
Quarter: 2005Q1

REPORT INFORMATION
  Report Type: 
  Country: None (occurrence: None)
  Receive Date: 20050120
  Receipt Date: 20050120
  Transmission Date: 20050727
  Serious: Yes (Hospitalization)
  Sender: FDA-Public Use
  Company Number: None

PATIENT
  Age: 52 Year
  Sex: Male
  Weight: 58.9676 kg

DRUGS (8)
  1. PACLITAXEL [Suspect]
     Indication: TONSIL CANCER
     Dosage: 40 MG/M2   Q WEEK X 8   INTRAVENOUS
     Route: 042
     Dates: start: 20041109, end: 20041228
  2. CARBOPLATIN [Suspect]
     Indication: TONSIL CANCER
     Dosage: 100 MG/M2   Q WEEK X 8   INTRAVENOUS
     Route: 042
     Dates: start: 20041109, end: 20041228
  3. ALPRAZOLAM [Concomitant]
  4. OXYCODONE HCL [Concomitant]
  5. DURAGESIC [Concomitant]
  6. CASTOR OIL [Concomitant]
  7. SENNA [Concomitant]
  8. PROCHLORPERAZINE [Concomitant]

REACTIONS (2)
  - PNEUMONIA [None]
  - PYREXIA [None]
